FAERS Safety Report 9870169 (Version 3)
Quarter: 2014Q1

REPORT INFORMATION
  Report Type: Spontaneous
  Country: US (occurrence: US)
  Receive Date: 20140205
  Receipt Date: 20140225
  Transmission Date: 20141002
  Serious: Yes (Hospitalization)
  Sender: FDA-Public Use
  Company Number: US-OTSUKA-US-2014-10022

PATIENT
  Age: 26 Year
  Sex: Female

DRUGS (1)
  1. ABILIFY MAINTENA [Suspect]
     Indication: SCHIZOPHRENIA
     Dosage: 400 MG MILLIGRAM(S), QM
     Route: 030
     Dates: end: 20131121

REACTIONS (5)
  - Schizophrenia [Recovered/Resolved]
  - Stress [Recovered/Resolved]
  - Investigation [Not Recovered/Not Resolved]
  - Drug dose omission [Unknown]
  - Vision blurred [Unknown]
